FAERS Safety Report 7277961-9 (Version None)
Quarter: 2011Q1

REPORT INFORMATION
  Report Type: 
  Country: None (occurrence: None)
  Receive Date: 20110207
  Receipt Date: 20110125
  Transmission Date: 20110831
  Serious: Yes (Hospitalization, Other)
  Sender: FDA-Public Use
  Company Number: IT-ELI_LILLY_AND_COMPANY-IT201101005937

PATIENT
  Sex: Female

DRUGS (2)
  1. ALIMTA [Suspect]
     Indication: LUNG NEOPLASM MALIGNANT
     Dosage: 900 D/F, DAILY (1/D)
     Route: 042
     Dates: start: 20100308, end: 20100623
  2. CISPLATIN [Concomitant]
     Dosage: 100 MG, UNK
     Route: 042
     Dates: start: 20100308, end: 20100623

REACTIONS (3)
  - NEUTROPENIA [None]
  - DIARRHOEA [None]
  - PERICARDIAL EFFUSION [None]
